FAERS Safety Report 4567292-X (Version None)
Quarter: 2005Q1

REPORT INFORMATION
  Report Type: 
  Country: None (occurrence: None)
  Receive Date: 20050127
  Receipt Date: 20050114
  Transmission Date: 20050727
  Serious: Yes (Other)
  Sender: FDA-Public Use
  Company Number: 2005014726

PATIENT
  Age: 56 Year
  Sex: Male
  Weight: 85.2762 kg

DRUGS (5)
  1. VIAGRA [Suspect]
     Indication: ERECTILE DYSFUNCTION
     Dosage: 100 MG (100 MG, AS NECESSARY), ORAL
     Route: 048
  2. TOCOPHEROL                     (TOCOPHEROL) [Suspect]
     Indication: THROMBOCYTOPENIA
     Dosage: 400 I.U. (400 I.U., 1 IN 1 D), ORAL
     Route: 048
     Dates: end: 20040101
  3. CHLORPROMAZINE [Concomitant]
  4. VITAMINS                   (VITAMINS) [Concomitant]
  5. MINERALS NOS            (MINERALS NOS) [Concomitant]

REACTIONS (5)
  - BLOOD PRESSURE INCREASED [None]
  - COAGULOPATHY [None]
  - COLONIC POLYP [None]
  - HAEMORRHAGE [None]
  - PROSTATIC SPECIFIC ANTIGEN INCREASED [None]
